FAERS Safety Report 7125504-2 (Version None)
Quarter: 2010Q4

REPORT INFORMATION
  Report Type: 
  Country: None (occurrence: None)
  Receive Date: 20101129
  Receipt Date: 20101119
  Transmission Date: 20110411
  Serious: Yes (Other)
  Sender: FDA-Public Use
  Company Number: GB-ROCHE-739982

PATIENT
  Sex: Male
  Weight: 88.1 kg

DRUGS (7)
  1. BEVACIZUMAB [Suspect]
     Indication: COLORECTAL CANCER
     Dosage: 08 OCT 2010 MOST RECENT DOSE GIVEN, CURRENT CYCLE 8
     Route: 042
     Dates: start: 20100430
  2. CAPECITABINE [Suspect]
     Indication: COLORECTAL CANCER
     Dosage: FOR 14 DAYS OF 21 DAY CYCLE.  08 OCT 2010, MOST RECENT DOSE GIVEN, CURRENT CYCLE 8
     Route: 048
     Dates: start: 20100430
  3. CAPECITABINE [Suspect]
     Dosage: 25% DOSE REDUCTION, MOST RECENT DOSE 22 OCT 2010
     Route: 048
     Dates: end: 20101022
  4. ATORVASTATIN [Concomitant]
     Indication: HYPERCHOLESTEROLAEMIA
     Route: 048
  5. DICLOFENAC SODIUM [Concomitant]
     Route: 048
  6. PARACETAMOL [Concomitant]
     Dosage: DOSE REPORTED AS 4G
     Route: 048
  7. TRAMADOL HCL [Concomitant]
     Indication: PAIN

REACTIONS (1)
  - MYOPATHY [None]
